FAERS Safety Report 14383115 (Version 4)
Quarter: 2024Q1

REPORT INFORMATION
  Report Type: Other
  Country: US (occurrence: None)
  Receive Date: 20180115
  Receipt Date: 20240215
  Transmission Date: 20240410
  Serious: Yes (Other)
  Sender: FDA-Public Use
  Company Number: US-ROCHE-2052519

PATIENT
  Age: 68 Year
  Sex: Female
  Weight: 81.72 kg

DRUGS (6)
  1. OCREVUS [Suspect]
     Active Substance: OCRELIZUMAB
     Indication: Primary progressive multiple sclerosis
     Dosage: DATE OF PREVIOUS INFUSION 09/DEC/2017, 12/JAN/2018, 13/JUL/2018, 18/JAN/2019, 19/JUL/2019, 17/JAN/20
     Route: 042
     Dates: start: 20171209
  2. OCREVUS [Suspect]
     Active Substance: OCRELIZUMAB
     Dosage: IN 10 ML OF MEDICATION?DATE OF TREATMENT: 26/JUL/2023, 26/JAN2024
     Route: 042
     Dates: start: 20170630
  3. AMPYRA [Concomitant]
     Active Substance: DALFAMPRIDINE
     Indication: Fatigue
     Route: 048
     Dates: start: 201111
  4. OXYBUTYNIN [Concomitant]
     Active Substance: OXYBUTYNIN\OXYBUTYNIN CHLORIDE
     Route: 048
  5. LINZESS [Concomitant]
     Active Substance: LINACLOTIDE
     Route: 048
  6. AMITRIPTYLINE [Concomitant]
     Active Substance: AMITRIPTYLINE

REACTIONS (12)
  - Fall [Unknown]
  - Hip fracture [Unknown]
  - Retinal detachment [Not Recovered/Not Resolved]
  - Hypertension [Recovered/Resolved]
  - Heart rate increased [Not Recovered/Not Resolved]
  - Hip fracture [Unknown]
  - Fatigue [Recovered/Resolved]
  - Visual impairment [Not Recovered/Not Resolved]
  - Vision blurred [Not Recovered/Not Resolved]
  - Metamorphopsia [Not Recovered/Not Resolved]
  - Retinal disorder [Unknown]
  - Corneal disorder [Unknown]

NARRATIVE: CASE EVENT DATE: 20170901
